FAERS Safety Report 16174340 (Version 1)
Quarter: 2019Q2

REPORT INFORMATION
  Report Type: Spontaneous
  Country: US (occurrence: US)
  Receive Date: 20190409
  Receipt Date: 20190409
  Transmission Date: 20190711
  Serious: No
  Sender: FDA-Public Use
  Company Number: US-MYLANLABS-2019M1028688

PATIENT
  Sex: Female
  Weight: 82 kg

DRUGS (1)
  1. ESTRADIOL VAGINAL CREAM USP [Suspect]
     Active Substance: ESTRADIOL
     Indication: CERVIX DISORDER
     Dosage: 1 GRAM, 3XW
     Route: 067
     Dates: start: 20190213

REACTIONS (1)
  - Product dose omission [Not Recovered/Not Resolved]
